FAERS Safety Report 4502677-9 (Version None)
Quarter: 2004Q4

REPORT INFORMATION
  Report Type: 
  Country: None (occurrence: None)
  Receive Date: 20041110
  Receipt Date: 20040611
  Transmission Date: 20050328
  Serious: No
  Sender: FDA-Public Use
  Company Number: 8187

PATIENT
  Age: 49 Year
  Sex: Male

DRUGS (8)
  1. MORPHINE [Suspect]
     Indication: PAIN
     Dosage: 200 MG BID
  2. NALBUPHINE [Suspect]
     Indication: PAIN
     Dosage: 10 MG IV
     Route: 042
     Dates: start: 20040105, end: 20040105
  3. DIAMORPHINE [Suspect]
     Indication: PAIN
     Dosage: 10 MG IM
     Route: 030
  4. IBUPROFEN [Concomitant]
  5. CYCLIZINE [Concomitant]
  6. ASPIRIN [Concomitant]
  7. DIETHYLSTILBESTROL [Concomitant]
  8. CO-DANTHRAMER [Concomitant]

REACTIONS (14)
  - ANAPHYLACTIC REACTION [None]
  - DISEASE PROGRESSION [None]
  - DRUG INTERACTION [None]
  - DRUG WITHDRAWAL SYNDROME [None]
  - FEELING HOT [None]
  - FLUSHING [None]
  - HYPERHIDROSIS [None]
  - MALIGNANT NEOPLASM PROGRESSION [None]
  - METASTASES TO BONE [None]
  - NAUSEA [None]
  - PALPITATIONS [None]
  - PROSTATE CANCER [None]
  - RASH [None]
  - TREMOR [None]
